FAERS Safety Report 6129545-3 (Version None)
Quarter: 2009Q1

REPORT INFORMATION
  Report Type: 
  Country: None (occurrence: None)
  Receive Date: 20090324
  Receipt Date: 20090323
  Transmission Date: 20090719
  Serious: Yes (Death, Hospitalization, Congenital Anomaly, Other)
  Sender: FDA-Public Use
  Company Number: US-RB-012248-09

PATIENT

DRUGS (1)
  1. SUBUTEX [Suspect]
     Route: 064
     Dates: start: 20080514, end: 20090105

REACTIONS (3)
  - DRUG EXPOSURE DURING PREGNANCY [None]
  - FOETAL CARDIAC DISORDER [None]
  - PULMONARY HYPOPLASIA [None]
